FAERS Safety Report 12709558 (Version 1)
Quarter: 2016Q3

REPORT INFORMATION
  Report Type: Report from Study
  Country: US (occurrence: US)
  Receive Date: 20160902
  Receipt Date: 20160902
  Transmission Date: 20161109
  Serious: Yes (Hospitalization, Other)
  Sender: FDA-Public Use
  Company Number: US-ROCHE-1710081

PATIENT
  Age: 61 Year
  Sex: Male
  Weight: 95 kg

DRUGS (5)
  1. IPILIMUMAB [Suspect]
     Active Substance: IPILIMUMAB
     Indication: MALIGNANT MELANOMA
     Dosage: 03/NOV/2015, MOST RECENT DOSE PRIOR TO SAE
     Route: 042
     Dates: start: 20150826, end: 20160628
  2. BEVACIZUMAB [Suspect]
     Active Substance: BEVACIZUMAB
     Indication: MALIGNANT MELANOMA
     Dosage: 01-DEC-2015, MOST RECENT DOSE PRIOR TO SAE
     Route: 042
     Dates: start: 20150826, end: 20160628
  3. PREDNISONE. [Concomitant]
     Active Substance: PREDNISONE
     Route: 065
     Dates: start: 20151105
  4. PREDNISONE. [Concomitant]
     Active Substance: PREDNISONE
     Route: 065
     Dates: start: 20151207
  5. PREDNISONE. [Concomitant]
     Active Substance: PREDNISONE
     Route: 065
     Dates: start: 20151214

REACTIONS (4)
  - Hypertension [Unknown]
  - Colitis [Unknown]
  - Colitis [Unknown]
  - Anaemia [Unknown]

NARRATIVE: CASE EVENT DATE: 20151207
